APPROVED DRUG PRODUCT: NIZORAL
Active Ingredient: KETOCONAZOLE
Strength: 2% **Federal Register determination that product was not discontinued or withdrawn for safety or effectiveness reasons**
Dosage Form/Route: CREAM;TOPICAL
Application: N019084 | Product #001
Applicant: JANSSEN PHARMACEUTICA PRODUCTS LP
Approved: Dec 31, 1985 | RLD: Yes | RS: No | Type: DISCN